FAERS Safety Report 7771897 (Version 4)
Quarter: 2013Q1

REPORT INFORMATION
  Report Type: Report from Study
  Country: JP (occurrence: JP)
  Receive Date: 20110124
  Receipt Date: 20130319
  Transmission Date: 20140127
  Serious: Yes (Hospitalization)
  Sender: FDA-Public Use
  Company Number: PHHY2011JP03205

PATIENT
  Sex: 0

DRUGS (6)
  1. AFINITOR [Suspect]
     Indication: METASTATIC RENAL CELL CARCINOMA
     Dosage: 10 MG, QD
     Route: 048
     Dates: start: 20101213, end: 20101221
  2. INTERFERON ALFA [Concomitant]
     Indication: METASTATIC RENAL CELL CARCINOMA
     Dosage: 3000000 IU
     Dates: start: 20040628, end: 20041025
  3. TECELEUKIN [Concomitant]
     Indication: METASTATIC RENAL CELL CARCINOMA
     Dosage: 700000 IU, UNK
     Dates: start: 20090623, end: 20100216
  4. SORAFENIB TOSILATE [Concomitant]
     Indication: METASTATIC RENAL CELL CARCINOMA
     Dosage: 800 MG, UNK
     Route: 048
     Dates: start: 20100316, end: 20101118
  5. URIEF [Concomitant]
     Dosage: 4 MG, UNK
     Route: 048
     Dates: start: 20071206, end: 20090109
  6. FLIVAS [Concomitant]
     Dosage: 80 MG, UNK
     Route: 048
     Dates: start: 20090110

REACTIONS (3)
  - Intestinal obstruction [Recovering/Resolving]
  - Stomatitis [Unknown]
  - C-reactive protein increased [Unknown]
